FAERS Safety Report 10083260 (Version 13)
Quarter: 2015Q3

REPORT INFORMATION
  Report Type: Report from Study
  Country: CA (occurrence: CA)
  Receive Date: 20140417
  Receipt Date: 20150811
  Transmission Date: 20151125
  Serious: Yes (Other)
  Sender: FDA-Public Use
  Company Number: CA-ROCHE-1385402

PATIENT
  Age: 53 Year
  Sex: Female
  Weight: 84 kg

DRUGS (7)
  1. ACTEMRA [Suspect]
     Active Substance: TOCILIZUMAB
     Route: 042
     Dates: start: 20150115, end: 20150703
  2. ACTEMRA [Suspect]
     Active Substance: TOCILIZUMAB
     Route: 042
     Dates: start: 20141112
  3. PLAQUENIL [Concomitant]
     Active Substance: HYDROXYCHLOROQUINE SULFATE
  4. ACTEMRA [Suspect]
     Active Substance: TOCILIZUMAB
     Route: 042
     Dates: start: 20141216
  5. CELEBREX [Concomitant]
     Active Substance: CELECOXIB
  6. ACTEMRA [Suspect]
     Active Substance: TOCILIZUMAB
     Indication: RHEUMATOID ARTHRITIS
     Route: 042
     Dates: start: 20111024
  7. ARAVA [Concomitant]
     Active Substance: LEFLUNOMIDE

REACTIONS (12)
  - Nasopharyngitis [Not Recovered/Not Resolved]
  - Body temperature decreased [Unknown]
  - Road traffic accident [Unknown]
  - Infusion related reaction [Unknown]
  - Treatment failure [Unknown]
  - Incorrect dose administered [Unknown]
  - Post-traumatic neck syndrome [Not Recovered/Not Resolved]
  - Arthropathy [Unknown]
  - Weight fluctuation [Not Recovered/Not Resolved]
  - Joint swelling [Unknown]
  - Hypertension [Not Recovered/Not Resolved]
  - Vaginal infection [Not Recovered/Not Resolved]

NARRATIVE: CASE EVENT DATE: 20140423
